FAERS Safety Report 6130122-9 (Version None)
Quarter: 2009Q1

REPORT INFORMATION
  Report Type: 
  Country: None (occurrence: None)
  Receive Date: 20090324
  Receipt Date: 20090318
  Transmission Date: 20090719
  Serious: Yes (Hospitalization, Other)
  Sender: FDA-Public Use
  Company Number: PHBS2006JP15033

PATIENT
  Age: 11 Year
  Sex: Male

DRUGS (10)
  1. NEORAL [Suspect]
     Indication: CORD BLOOD TRANSPLANT THERAPY
     Dosage: UNK
     Route: 048
     Dates: start: 20031101
  2. METHYLPREDNISOLONE 4MG TAB [Concomitant]
     Indication: ANAEMIA HAEMOLYTIC AUTOIMMUNE
     Dosage: PULSE THERAPY
     Dates: start: 20051101
  3. PREDNISOLONE [Concomitant]
     Dosage: 20 MG/D
  4. MYCOPHENOLATE MOFETIL [Concomitant]
     Dosage: 1 G/D
  5. IRRADIATION [Concomitant]
  6. LPAM [Concomitant]
  7. METHOTREXATE [Concomitant]
  8. ANTI-THYMOCYTE GLOBULIN NOS [Concomitant]
  9. CYCLOPHOSPHAMIDE [Concomitant]
  10. IMMUNOGLOBULIN ANTI-HUMAN-LYMPHOCYTIC [Concomitant]

REACTIONS (21)
  - ACQUIRED HAEMOPHILIA [None]
  - ACTIVATED PARTIAL THROMBOPLASTIN TIME PROLONGED [None]
  - ANAEMIA HAEMOLYTIC AUTOIMMUNE [None]
  - CHRONIC GRAFT VERSUS HOST DISEASE [None]
  - CONVULSION [None]
  - DIABETES MELLITUS [None]
  - FACTOR VIII DEFICIENCY [None]
  - FACTOR VIII INHIBITION [None]
  - HAEMARTHROSIS [None]
  - HAEMORRHAGE [None]
  - HAEMORRHAGE SUBCUTANEOUS [None]
  - IDIOPATHIC THROMBOCYTOPENIC PURPURA [None]
  - JOINT SWELLING [None]
  - LICHENOID KERATOSIS [None]
  - NEPHROTIC SYNDROME [None]
  - PAIN [None]
  - SCLERODERMA [None]
  - SICCA SYNDROME [None]
  - SWELLING [None]
  - THROMBOCYTOPENIA [None]
  - TOXIC ENCEPHALOPATHY [None]
